FAERS Safety Report 10487149 (Version 4)
Quarter: 2015Q2

REPORT INFORMATION
  Report Type: Report from Study
  Country: BR (occurrence: BR)
  Receive Date: 20141001
  Receipt Date: 20150408
  Transmission Date: 20150821
  Serious: Yes (Hospitalization, Other)
  Sender: FDA-Public Use
  Company Number: BR-ABBVIE-14K-020-1289000-00

PATIENT
  Age: 63 Year
  Sex: Female
  Weight: 73 kg

DRUGS (8)
  1. ARAVA [Concomitant]
     Active Substance: LEFLUNOMIDE
     Indication: RHEUMATIC DISORDER
  2. ARAVA [Concomitant]
     Active Substance: LEFLUNOMIDE
     Indication: ARTHRITIS
     Route: 048
     Dates: start: 201003
  3. LIDSAL [Concomitant]
     Indication: RHEUMATIC DISORDER
     Route: 048
     Dates: start: 20141201
  4. HUMIRA [Suspect]
     Active Substance: ADALIMUMAB
     Indication: RHEUMATOID ARTHRITIS
     Route: 058
     Dates: start: 201003, end: 20140914
  5. REUQUINOL [Concomitant]
     Active Substance: HYDROXYCHLOROQUINE SULFATE
     Indication: RHEUMATIC DISORDER
  6. OMEGA 3 [Concomitant]
     Active Substance: OMEGA-3 FATTY ACIDS
     Indication: RHEUMATIC DISORDER
     Route: 048
     Dates: start: 20141204
  7. REUQUINOL [Concomitant]
     Active Substance: HYDROXYCHLOROQUINE SULFATE
     Indication: ARTHRITIS
     Route: 048
     Dates: start: 201003
  8. CORDAREX [Concomitant]
     Active Substance: AMIODARONE
     Indication: HYPERTENSION
     Route: 048

REACTIONS (13)
  - Spinal disorder [Not Recovered/Not Resolved]
  - Impaired healing [Not Recovered/Not Resolved]
  - Blood glucose abnormal [Recovered/Resolved]
  - Musculoskeletal pain [Unknown]
  - Osteoarthritis [Not Recovered/Not Resolved]
  - Nervousness [Recovered/Resolved]
  - Pain [Not Recovered/Not Resolved]
  - Post procedural complication [Not Recovered/Not Resolved]
  - Nervous system disorder [Not Recovered/Not Resolved]
  - Tendon rupture [Unknown]
  - Shoulder operation [Unknown]
  - Arthritis [Unknown]
  - Muscle atrophy [Not Recovered/Not Resolved]

NARRATIVE: CASE EVENT DATE: 2012
